FAERS Safety Report 24605150 (Version 4)
Quarter: 2024Q4

REPORT INFORMATION
  Report Type: Spontaneous
  Country: CN (occurrence: CN)
  Receive Date: 20241111
  Receipt Date: 20241223
  Transmission Date: 20250115
  Serious: Yes (Life-Threatening, Hospitalization, Other)
  Sender: MERCK
  Company Number: CN-009507513-2411CHN003350

PATIENT
  Age: 62 Year
  Sex: Male

DRUGS (3)
  1. KEYTRUDA [Suspect]
     Active Substance: PEMBROLIZUMAB
     Indication: Tonsil cancer metastatic
     Dosage: 200 MILLIGRAM
     Dates: start: 20240926
  2. PACLITAXEL [Suspect]
     Active Substance: PACLITAXEL
     Indication: Tonsil cancer metastatic
     Dosage: 390 MILLIGRAM
     Dates: start: 20240926
  3. CARBOPLATIN [Suspect]
     Active Substance: CARBOPLATIN
     Indication: Tonsil cancer metastatic
     Dosage: 290 MILLIGRAM
     Dates: start: 20240926

REACTIONS (30)
  - Toxic epidermal necrolysis [Unknown]
  - Drug eruption [Unknown]
  - Loss of consciousness [Recovered/Resolved]
  - Seizure [Recovered/Resolved]
  - Skin infection [Unknown]
  - Splenic artery aneurysm [Unknown]
  - Pulmonary fibrosis [Unknown]
  - Cerebral infarction [Unknown]
  - Hyperbilirubinaemia [Unknown]
  - Hypoproteinaemia [Unknown]
  - Hypocalcaemia [Unknown]
  - Decreased appetite [Unknown]
  - Poor quality sleep [Unknown]
  - Spleen disorder [Unknown]
  - Arteriosclerosis [Unknown]
  - Dizziness [Unknown]
  - Pleural thickening [Unknown]
  - Coagulopathy [Unknown]
  - Hepatic function abnormal [Unknown]
  - Anaemia [Unknown]
  - Blood uric acid increased [Unknown]
  - Blood potassium decreased [Unknown]
  - Constipation [Unknown]
  - Chronic gastritis [Unknown]
  - Lethargy [Unknown]
  - Splenomegaly [Unknown]
  - Klebsiella test positive [Unknown]
  - Haemophilus test positive [Unknown]
  - Carbon dioxide decreased [Unknown]
  - Blood sodium decreased [Unknown]

NARRATIVE: CASE EVENT DATE: 20240101
